FAERS Safety Report 23725422 (Version 2)
Quarter: 2024Q3

REPORT INFORMATION
  Report Type: Spontaneous
  Country: US (occurrence: US)
  Receive Date: 20240410
  Receipt Date: 20240919
  Transmission Date: 20241016
  Serious: No
  Sender: ELI LILLY AND CO
  Company Number: US-ELI_LILLY_AND_COMPANY-US202404005710

PATIENT
  Age: 59 Year
  Sex: Female

DRUGS (52)
  1. ZEPBOUND [Suspect]
     Active Substance: TIRZEPATIDE
     Indication: Weight control
     Dosage: 2.5 MG, UNKNOWN
     Route: 058
     Dates: start: 202401
  2. ZEPBOUND [Suspect]
     Active Substance: TIRZEPATIDE
     Indication: Weight control
     Dosage: 2.5 MG, UNKNOWN
     Route: 058
     Dates: start: 202401
  3. ZEPBOUND [Suspect]
     Active Substance: TIRZEPATIDE
     Indication: Weight control
     Dosage: 2.5 MG, UNKNOWN
     Route: 058
     Dates: start: 202401
  4. ZEPBOUND [Suspect]
     Active Substance: TIRZEPATIDE
     Indication: Weight control
     Dosage: 2.5 MG, UNKNOWN
     Route: 058
     Dates: start: 202401
  5. ZEPBOUND [Suspect]
     Active Substance: TIRZEPATIDE
     Indication: Glycosylated haemoglobin abnormal
  6. ZEPBOUND [Suspect]
     Active Substance: TIRZEPATIDE
     Indication: Glycosylated haemoglobin abnormal
  7. ZEPBOUND [Suspect]
     Active Substance: TIRZEPATIDE
     Indication: Glycosylated haemoglobin abnormal
  8. ZEPBOUND [Suspect]
     Active Substance: TIRZEPATIDE
     Indication: Glycosylated haemoglobin abnormal
  9. ZEPBOUND [Suspect]
     Active Substance: TIRZEPATIDE
     Indication: Weight control
     Dosage: 5 MG, UNKNOWN
     Route: 058
  10. ZEPBOUND [Suspect]
     Active Substance: TIRZEPATIDE
     Indication: Weight control
     Dosage: 5 MG, UNKNOWN
     Route: 058
  11. ZEPBOUND [Suspect]
     Active Substance: TIRZEPATIDE
     Indication: Weight control
     Dosage: 5 MG, UNKNOWN
     Route: 058
  12. ZEPBOUND [Suspect]
     Active Substance: TIRZEPATIDE
     Indication: Weight control
     Dosage: 5 MG, UNKNOWN
     Route: 058
  13. ZEPBOUND [Suspect]
     Active Substance: TIRZEPATIDE
     Indication: Glycosylated haemoglobin abnormal
  14. ZEPBOUND [Suspect]
     Active Substance: TIRZEPATIDE
     Indication: Glycosylated haemoglobin abnormal
  15. ZEPBOUND [Suspect]
     Active Substance: TIRZEPATIDE
     Indication: Glycosylated haemoglobin abnormal
  16. ZEPBOUND [Suspect]
     Active Substance: TIRZEPATIDE
     Indication: Glycosylated haemoglobin abnormal
  17. ZEPBOUND [Suspect]
     Active Substance: TIRZEPATIDE
     Indication: Weight control
     Dosage: 7.5 MG, UNKNOWN
     Route: 058
  18. ZEPBOUND [Suspect]
     Active Substance: TIRZEPATIDE
     Indication: Weight control
     Dosage: 7.5 MG, UNKNOWN
     Route: 058
  19. ZEPBOUND [Suspect]
     Active Substance: TIRZEPATIDE
     Indication: Weight control
     Dosage: 7.5 MG, UNKNOWN
     Route: 058
  20. ZEPBOUND [Suspect]
     Active Substance: TIRZEPATIDE
     Indication: Weight control
     Dosage: 7.5 MG, UNKNOWN
     Route: 058
  21. ZEPBOUND [Suspect]
     Active Substance: TIRZEPATIDE
     Indication: Glycosylated haemoglobin abnormal
  22. ZEPBOUND [Suspect]
     Active Substance: TIRZEPATIDE
     Indication: Glycosylated haemoglobin abnormal
  23. ZEPBOUND [Suspect]
     Active Substance: TIRZEPATIDE
     Indication: Glycosylated haemoglobin abnormal
  24. ZEPBOUND [Suspect]
     Active Substance: TIRZEPATIDE
     Indication: Glycosylated haemoglobin abnormal
  25. ZEPBOUND [Suspect]
     Active Substance: TIRZEPATIDE
     Indication: Weight control
     Dosage: 10 MG, UNKNOWN
     Route: 058
  26. ZEPBOUND [Suspect]
     Active Substance: TIRZEPATIDE
     Indication: Weight control
     Dosage: 10 MG, UNKNOWN
     Route: 058
  27. ZEPBOUND [Suspect]
     Active Substance: TIRZEPATIDE
     Indication: Weight control
     Dosage: 10 MG, UNKNOWN
     Route: 058
  28. ZEPBOUND [Suspect]
     Active Substance: TIRZEPATIDE
     Indication: Weight control
     Dosage: 10 MG, UNKNOWN
     Route: 058
  29. ZEPBOUND [Suspect]
     Active Substance: TIRZEPATIDE
     Indication: Glycosylated haemoglobin abnormal
  30. ZEPBOUND [Suspect]
     Active Substance: TIRZEPATIDE
     Indication: Glycosylated haemoglobin abnormal
  31. ZEPBOUND [Suspect]
     Active Substance: TIRZEPATIDE
     Indication: Glycosylated haemoglobin abnormal
  32. ZEPBOUND [Suspect]
     Active Substance: TIRZEPATIDE
     Indication: Glycosylated haemoglobin abnormal
  33. ZEPBOUND [Suspect]
     Active Substance: TIRZEPATIDE
     Indication: Weight control
     Dosage: 12.5 MG, UNKNOWN
     Route: 058
  34. ZEPBOUND [Suspect]
     Active Substance: TIRZEPATIDE
     Indication: Weight control
     Dosage: 12.5 MG, UNKNOWN
     Route: 058
  35. ZEPBOUND [Suspect]
     Active Substance: TIRZEPATIDE
     Indication: Weight control
     Dosage: 12.5 MG, UNKNOWN
     Route: 058
  36. ZEPBOUND [Suspect]
     Active Substance: TIRZEPATIDE
     Indication: Weight control
     Dosage: 12.5 MG, UNKNOWN
     Route: 058
  37. ZEPBOUND [Suspect]
     Active Substance: TIRZEPATIDE
     Indication: Weight control
     Dosage: 12.5 MG, UNKNOWN
     Route: 058
  38. ZEPBOUND [Suspect]
     Active Substance: TIRZEPATIDE
     Indication: Glycosylated haemoglobin abnormal
  39. ZEPBOUND [Suspect]
     Active Substance: TIRZEPATIDE
     Indication: Glycosylated haemoglobin abnormal
  40. ZEPBOUND [Suspect]
     Active Substance: TIRZEPATIDE
     Indication: Glycosylated haemoglobin abnormal
  41. ZEPBOUND [Suspect]
     Active Substance: TIRZEPATIDE
     Indication: Glycosylated haemoglobin abnormal
  42. ZEPBOUND [Suspect]
     Active Substance: TIRZEPATIDE
     Indication: Glycosylated haemoglobin abnormal
  43. ZEPBOUND [Suspect]
     Active Substance: TIRZEPATIDE
     Indication: Weight control
     Dosage: 15 MG, UNKNOWN
     Route: 058
  44. ZEPBOUND [Suspect]
     Active Substance: TIRZEPATIDE
     Indication: Weight control
     Dosage: 15 MG, UNKNOWN
     Route: 058
  45. ZEPBOUND [Suspect]
     Active Substance: TIRZEPATIDE
     Indication: Weight control
     Dosage: 15 MG, UNKNOWN
     Route: 058
  46. ZEPBOUND [Suspect]
     Active Substance: TIRZEPATIDE
     Indication: Weight control
     Dosage: 15 MG, UNKNOWN
     Route: 058
  47. ZEPBOUND [Suspect]
     Active Substance: TIRZEPATIDE
     Indication: Weight control
     Dosage: 15 MG, UNKNOWN
     Route: 058
  48. ZEPBOUND [Suspect]
     Active Substance: TIRZEPATIDE
     Indication: Glycosylated haemoglobin abnormal
     Dosage: 15 MG, UNKNOWN
     Route: 058
  49. ZEPBOUND [Suspect]
     Active Substance: TIRZEPATIDE
     Indication: Glycosylated haemoglobin abnormal
     Dosage: 15 MG, UNKNOWN
     Route: 058
  50. ZEPBOUND [Suspect]
     Active Substance: TIRZEPATIDE
     Indication: Glycosylated haemoglobin abnormal
     Dosage: 15 MG, UNKNOWN
     Route: 058
  51. ZEPBOUND [Suspect]
     Active Substance: TIRZEPATIDE
     Indication: Glycosylated haemoglobin abnormal
     Dosage: 15 MG, UNKNOWN
     Route: 058
  52. ZEPBOUND [Suspect]
     Active Substance: TIRZEPATIDE
     Indication: Glycosylated haemoglobin abnormal
     Dosage: 15 MG, UNKNOWN
     Route: 058

REACTIONS (5)
  - Incorrect dose administered [Unknown]
  - Headache [Recovered/Resolved]
  - Nausea [Recovered/Resolved]
  - Injection site erythema [Unknown]
  - Injection site pain [Unknown]

NARRATIVE: CASE EVENT DATE: 20240101
